FAERS Safety Report 5472784-5 (Version None)
Quarter: 2007Q4

REPORT INFORMATION
  Report Type: 
  Country: None (occurrence: None)
  Receive Date: 20071001
  Receipt Date: 20070223
  Transmission Date: 20080405
  Serious: No
  Sender: FDA-Public Use
  Company Number: US-ASTRAZENECA-2006UW21355

PATIENT
  Age: 61 Year
  Sex: Female
  Weight: 73.5 kg

DRUGS (9)
  1. ARIMIDEX [Suspect]
     Indication: BREAST CANCER FEMALE
     Route: 048
     Dates: start: 20060101
  2. BLACK COHOSH TOPICAL [Concomitant]
  3. COUMADIN [Concomitant]
  4. TRAZODONE HCL [Concomitant]
  5. VERAPAMIL [Concomitant]
  6. PREVACID [Concomitant]
  7. SOMA [Concomitant]
  8. MAXALT [Concomitant]
  9. DICYLAMINE [Concomitant]

REACTIONS (3)
  - HOT FLUSH [None]
  - ILL-DEFINED DISORDER [None]
  - PROTHROMBIN TIME ABNORMAL [None]
